FAERS Safety Report 20509127 (Version 1)
Quarter: 2022Q1

REPORT INFORMATION
  Report Type: Spontaneous
  Country: FR (occurrence: FR)
  Receive Date: 20220223
  Receipt Date: 20220223
  Transmission Date: 20220424
  Serious: Yes (Hospitalization)
  Sender: FDA-Public Use
  Company Number: None

PATIENT
  Age: 18 Year
  Sex: Female
  Weight: 55 kg

DRUGS (7)
  1. ONDANSETRON [Suspect]
     Active Substance: ONDANSETRON
     Indication: Procedural nausea
     Dosage: 4 MG
     Route: 065
     Dates: start: 20220210
  2. PERFALGAN [Suspect]
     Active Substance: ACETAMINOPHEN
     Indication: Postoperative analgesia
     Dosage: 1 G
     Route: 065
     Dates: start: 20220210
  3. SUFENTA [Suspect]
     Active Substance: SUFENTANIL CITRATE
     Indication: Wisdom teeth removal
     Dosage: UNK
     Route: 065
     Dates: start: 20220210
  4. DEXAMETHASONE ACETATE [Suspect]
     Active Substance: DEXAMETHASONE ACETATE
     Indication: Dental local anaesthesia
     Dosage: 4 MG
     Route: 065
     Dates: start: 20220210
  5. TRAMADOL HYDROCHLORIDE [Suspect]
     Active Substance: TRAMADOL HYDROCHLORIDE
     Indication: Postoperative analgesia
     Dosage: 100 MG
     Route: 065
     Dates: start: 20220210
  6. KETAMINE [Suspect]
     Active Substance: KETAMINE
     Indication: Wisdom teeth removal
     Dosage: 20 MG
     Route: 065
     Dates: start: 20220210
  7. MIDAZOLAM [Suspect]
     Active Substance: MIDAZOLAM
     Indication: Wisdom teeth removal
     Dosage: 2 MG
     Route: 065
     Dates: start: 20220210

REACTIONS (2)
  - Myoclonus [Recovered/Resolved]
  - Dyskinesia [Recovered/Resolved]

NARRATIVE: CASE EVENT DATE: 20220210
